FAERS Safety Report 5621069-2 (Version None)
Quarter: 2008Q1

REPORT INFORMATION
  Report Type: 
  Country: None (occurrence: None)
  Receive Date: 20080208
  Receipt Date: 20080129
  Transmission Date: 20080703
  Serious: Yes (Other)
  Sender: FDA-Public Use
  Company Number: AU-PFIZER INC-2008010842

PATIENT
  Sex: Male

DRUGS (8)
  1. CHANTIX [Suspect]
  2. PREDNISOLONE [Concomitant]
  3. CIPROFLOXACIN HYDROCHLORIDE [Concomitant]
  4. SPIRIVA [Concomitant]
  5. BISOLVON [Concomitant]
  6. PANTOPRAZOLE SODIUM [Concomitant]
  7. THIAMINE HCL [Concomitant]
  8. VITAMINORUM [Concomitant]

REACTIONS (1)
  - DYSPNOEA [None]
